FAERS Safety Report 24618716 (Version 2)
Quarter: 2024Q4

REPORT INFORMATION
  Report Type: Report from Study
  Country: US (occurrence: US)
  Receive Date: 20241114
  Receipt Date: 20241129
  Transmission Date: 20250115
  Serious: No
  Sender: DAIICHI
  Company Number: US-DAIICHI SANKYO, INC.-DS-2024-107854-USAA

PATIENT
  Sex: Female

DRUGS (1)
  1. PEXIDARTINIB [Suspect]
     Active Substance: PEXIDARTINIB
     Indication: Synovitis
     Dosage: 250 MG, BID (125 MG TWO CAPSULES TWICE DAILY)
     Route: 048
     Dates: start: 20241030

REACTIONS (2)
  - Aspartate aminotransferase increased [Unknown]
  - Intentional product use issue [Unknown]
